FAERS Safety Report 10175902 (Version 2)
Quarter: 2014Q4

REPORT INFORMATION
  Report Type: Spontaneous
  Country: US (occurrence: None)
  Receive Date: 20140416
  Receipt Date: 20141010
  Transmission Date: 20150528
  Serious: Yes (Other)
  Sender: FDA-Public Use
  Company Number: 163-POMAL-13081068

PATIENT
  Age: 69 Year
  Sex: Female

DRUGS (7)
  1. POMALYST [Suspect]
     Active Substance: POMALIDOMIDE
     Indication: PLASMA CELL MYELOMA
     Route: 048
     Dates: start: 20130708
  2. FENTANYL. [Concomitant]
     Active Substance: FENTANYL
  3. NEURONTIN [Concomitant]
     Active Substance: GABAPENTIN
  4. ASPIRIN (ACETYLSALICYLIC ACID) [Concomitant]
     Active Substance: ASPIRIN
  5. OXYCODONE HCL (OXYCODONE HYDROCHLORIDE) [Concomitant]
  6. METOPROLOL TARTRATE. [Concomitant]
     Active Substance: METOPROLOL TARTRATE
  7. PAROXETINE ER (PAROXETINE) [Concomitant]

REACTIONS (1)
  - Neutropenia [None]

NARRATIVE: CASE EVENT DATE: 20130724
